FAERS Safety Report 8018823-9 (Version None)
Quarter: 2012Q1

REPORT INFORMATION
  Report Type: 
  Country: None (occurrence: None)
  Receive Date: 20120103
  Receipt Date: 20111222
  Transmission Date: 20120608
  Serious: Yes (Other)
  Sender: FDA-Public Use
  Company Number: US-PFIZER INC-2011312497

PATIENT
  Sex: Male
  Weight: 67.12 kg

DRUGS (22)
  1. TRICOR [Concomitant]
     Indication: BLOOD TRIGLYCERIDES ABNORMAL
     Dosage: 145 MG, DAILY
  2. CELEBREX [Suspect]
     Indication: SPINAL OSTEOARTHRITIS
     Dosage: 200 MG, DAILY
     Route: 048
  3. ARICEPT [Concomitant]
     Indication: DISTURBANCE IN ATTENTION
  4. CORTISONE [Concomitant]
     Dosage: UNK
  5. ALTACE [Suspect]
     Indication: HYPERTENSION
     Dosage: 5 MG, DAILY
  6. VIOXX [Suspect]
     Indication: OSTEOARTHRITIS
  7. CELEBREX [Suspect]
     Indication: OSTEOARTHRITIS
     Dosage: 200 MG, 2X/DAY
     Route: 048
  8. CELEBREX [Suspect]
     Dosage: 200 MG, DAILY
     Route: 048
  9. VOLTAREN [Suspect]
     Indication: SPINAL OSTEOARTHRITIS
     Dosage: UNK
  10. ORUDIS [Suspect]
     Indication: OSTEOARTHRITIS
  11. ICY HOT [Suspect]
     Indication: OSTEOARTHRITIS
  12. CYMBALTA [Concomitant]
     Indication: AFFECTIVE DISORDER
  13. ICY HOT [Suspect]
     Indication: SPINAL OSTEOARTHRITIS
     Dosage: UNK
  14. ARICEPT [Concomitant]
     Indication: DEMENTIA
  15. VIOXX [Suspect]
     Indication: SPINAL OSTEOARTHRITIS
     Dosage: UNK
  16. CYMBALTA [Concomitant]
     Indication: DEPRESSION
     Dosage: 60 MG, DAILY
  17. FLECTOR [Suspect]
     Indication: SPINAL OSTEOARTHRITIS
     Dosage: UNK
  18. VOLTAREN [Suspect]
     Indication: OSTEOARTHRITIS
  19. SINEMET [Concomitant]
     Indication: PARKINSON'S DISEASE
     Dosage: ONE AND HALF TABLET OF 25/100 MG, DAILY
     Route: 048
  20. FLECTOR [Suspect]
     Indication: OSTEOARTHRITIS
  21. ORUDIS [Suspect]
     Indication: SPINAL OSTEOARTHRITIS
     Dosage: UNK
  22. ARICEPT [Concomitant]
     Indication: PARKINSON'S DISEASE
     Dosage: 10 MG, DAILY

REACTIONS (8)
  - ABDOMINAL DISCOMFORT [None]
  - LOSS OF CONSCIOUSNESS [None]
  - SOMNOLENCE [None]
  - HYPOTENSION [None]
  - MALAISE [None]
  - NAUSEA [None]
  - INCORRECT DRUG ADMINISTRATION DURATION [None]
  - DRUG INEFFECTIVE [None]
